FAERS Safety Report 5926660-1 (Version None)
Quarter: 2008Q4

REPORT INFORMATION
  Report Type: 
  Country: None (occurrence: None)
  Receive Date: 20081022
  Receipt Date: 20081017
  Transmission Date: 20090506
  Serious: Yes (Hospitalization)
  Sender: FDA-Public Use
  Company Number: GB-ROCHE-592256

PATIENT
  Sex: Female
  Weight: 96 kg

DRUGS (2)
  1. ORLISTAT [Suspect]
     Indication: OBESITY
     Route: 048
     Dates: start: 20080624, end: 20080901
  2. PROVERA [Concomitant]
     Route: 048

REACTIONS (2)
  - ANKLE FRACTURE [None]
  - FALL [None]
